FAERS Safety Report 9743320 (Version 1)
Quarter: 2013Q4

REPORT INFORMATION
  Report Type: Spontaneous
  Country: TR (occurrence: TR)
  Receive Date: 20131210
  Receipt Date: 20131210
  Transmission Date: 20140711
  Serious: Yes (Hospitalization, Other)
  Sender: FDA-Public Use
  Company Number: TR-B.I. PHARMACEUTICALS,INC./RIDGEFIELD-2013-BI-41011GD

PATIENT
  Age: 10 Month
  Sex: Female

DRUGS (7)
  1. DIPYRIDAMOLE [Suspect]
     Indication: KAWASAKI^S DISEASE
     Dosage: 6 MG/KG IN 3 DOSES
  2. ALTEPLASE [Suspect]
     Indication: KAWASAKI^S DISEASE
     Dosage: 0.05 MG/KG/H INFUSION, FOLLOWED BY DECREASING DOSES
  3. IMMUNOGLOBULIN [Suspect]
     Indication: KAWASAKI^S DISEASE
     Dosage: 2 G/KG 12 H INFUSION
     Route: 042
  4. ASPIRIN [Suspect]
     Indication: KAWASAKI^S DISEASE
     Dosage: 80 MG/KG IN 4 DOSES
  5. WARFARIN [Suspect]
     Indication: KAWASAKI^S DISEASE
     Dosage: 0.2 MG/KG
  6. UNFRACTIONATED HEPARIN [Suspect]
     Indication: KAWASAKI^S DISEASE
     Dosage: 100 U/KG BOLUS, FOLLOWED BY 14 U/KG/H INFUSION WITH DECREASING DOSES
  7. LOW MOLECULAR WEIGHT HEPARIN [Suspect]
     Indication: KAWASAKI^S DISEASE
     Dosage: 2 MG/KG

REACTIONS (3)
  - Aneurysm [Unknown]
  - Thrombosis [Unknown]
  - Drug ineffective [Unknown]
